FAERS Safety Report 8306562-6 (Version None)
Quarter: 2012Q1

REPORT INFORMATION
  Report Type: 
  Country: None (occurrence: None)
  Receive Date: 20120326
  Receipt Date: 20111112
  Transmission Date: 20120608
  Serious: Yes (Hospitalization, Other)
  Sender: FDA-Public Use
  Company Number: PHHY2011US18281

PATIENT
  Age: 82 Year
  Sex: Female

DRUGS (4)
  1. TASIGNA [Suspect]
  2. TASIGNA [Suspect]
     Indication: CHRONIC MYELOID LEUKAEMIA
     Dosage: 200 MG DAILY FOR 5 DAYS A WEEK, SKIPPING MONDAY AND FRIDAY,, BID, ORAL
     Route: 048
     Dates: start: 20111004
  3. TASIGNA [Suspect]
     Indication: CHRONIC MYELOID LEUKAEMIA
     Dosage: 200 MG DAILY FOR 5 DAYS A WEEK, SKIPPING MONDAY AND FRIDAY,, BID, ORAL
     Route: 048
     Dates: start: 20110201
  4. TASIGNA [Suspect]

REACTIONS (11)
  - CONSTIPATION [None]
  - PRURITUS [None]
  - WHITE BLOOD CELL COUNT DECREASED [None]
  - LARGE INTESTINAL HAEMORRHAGE [None]
  - ORAL DISCOMFORT [None]
  - ARTERIAL RUPTURE [None]
  - SCRATCH [None]
  - THROMBOCYTOPENIA [None]
  - DYSPNOEA [None]
  - ANAEMIA [None]
  - FATIGUE [None]
